FAERS Safety Report 4378853-5 (Version None)
Quarter: 2004Q2

REPORT INFORMATION
  Report Type: 
  Country: None (occurrence: None)
  Receive Date: 20040601
  Receipt Date: 20040128
  Transmission Date: 20050107
  Serious: No
  Sender: FDA-Public Use
  Company Number: WAES  0401USA02130

PATIENT
  Age: 72 Year
  Sex: Male

DRUGS (3)
  1. ZETIA [Suspect]
     Indication: BLOOD CHOLESTEROL INCREASED
     Dosage: 10 MG/DAILY/PO
     Route: 048
     Dates: start: 20040125, end: 20040127
  2. ZANTAC [Concomitant]
  3. ALBUTEROL [Concomitant]

REACTIONS (3)
  - NERVOUSNESS [None]
  - RHINORRHOEA [None]
  - SINUS DISORDER [None]
